FAERS Safety Report 7435316-8 (Version None)
Quarter: 2011Q2

REPORT INFORMATION
  Report Type: 
  Country: None (occurrence: None)
  Receive Date: 20110425
  Receipt Date: 20110415
  Transmission Date: 20111010
  Serious: Yes (Hospitalization)
  Sender: FDA-Public Use
  Company Number: FR-JNJFOC-20110406656

PATIENT
  Age: 88 Year
  Sex: Male

DRUGS (9)
  1. TAVANIC [Suspect]
     Indication: LEGIONELLA INFECTION
     Route: 048
  2. ZESTRIL [Concomitant]
     Route: 065
  3. TRIFLUCAN [Concomitant]
     Indication: CANDIDIASIS
     Route: 065
  4. CORDARONE [Concomitant]
     Route: 065
  5. ACETAMINOPHEN [Concomitant]
     Route: 065
  6. ROCEPHIN [Concomitant]
     Route: 065
  7. SINTROM [Concomitant]
     Route: 065
  8. HEMIGOXINE NATIVELLE [Concomitant]
     Route: 065
  9. EURELIX [Concomitant]
     Route: 065

REACTIONS (3)
  - RASH MACULO-PAPULAR [None]
  - TOXIC SKIN ERUPTION [None]
  - PRURITUS [None]
